FAERS Safety Report 5408605-6 (Version None)
Quarter: 2007Q3

REPORT INFORMATION
  Report Type: 
  Country: None (occurrence: None)
  Receive Date: 20070808
  Receipt Date: 20070802
  Transmission Date: 20080115
  Serious: Yes (Other)
  Sender: FDA-Public Use
  Company Number: GBWYE179810OCT06

PATIENT
  Sex: Male
  Weight: 15.9 kg

DRUGS (2)
  1. REFACTO [Suspect]
     Indication: FACTOR VIII DEFICIENCY
     Dosage: 100 IU/KG EVERY 1 PRN
     Route: 042
     Dates: start: 20040614, end: 20061004
  2. KOGENATE [Concomitant]

REACTIONS (1)
  - FACTOR VIII INHIBITION [None]
